FAERS Safety Report 8820166 (Version 1)
Quarter: 2012Q4

REPORT INFORMATION
  Report Type: 
  Country: US (occurrence: US)
  Receive Date: 20121001
  Receipt Date: 20121001
  Transmission Date: 20130627
  Serious: Yes (Hospitalization, Other)
  Sender: FDA-Public Use
  Company Number: US-PFIZER INC-2003162005US

PATIENT
  Age: 53 Year
  Sex: Female
  Weight: 77.1 kg

DRUGS (4)
  1. CELEBREX [Suspect]
     Indication: BACK INJURY
     Dosage: 100 mg, as needed
     Route: 048
     Dates: start: 199909, end: 20030411
  2. CELEBREX [Suspect]
     Indication: BACK PAIN
  3. CELEBREX [Suspect]
     Indication: INFLAMMATION
  4. MULTIVITAMINS [Suspect]
     Dosage: UNK, single
     Dates: start: 200210, end: 200210

REACTIONS (9)
  - Anaphylactic shock [Unknown]
  - Craniocerebral injury [Unknown]
  - Loss of consciousness [Unknown]
  - Fall [Unknown]
  - Asthenia [Unknown]
  - Dizziness [Unknown]
  - Pruritus [Unknown]
  - Depressed mood [Unknown]
  - Disturbance in attention [Unknown]
